FAERS Safety Report 23749140 (Version 2)
Quarter: 2024Q2

REPORT INFORMATION
  Report Type: Spontaneous
  Country: US (occurrence: US)
  Receive Date: 20240416
  Receipt Date: 20240502
  Transmission Date: 20240716
  Serious: No
  Sender: FDA-Public Use
  Company Number: US-INSUD PHARMA-2404US02955

PATIENT

DRUGS (4)
  1. PROGESTERONE [Suspect]
     Active Substance: PROGESTERONE
     Indication: Hormone replacement therapy
     Dosage: UNK
     Route: 048
     Dates: start: 20240402
  2. PROGESTERONE [Suspect]
     Active Substance: PROGESTERONE
     Indication: Bone density abnormal
     Dosage: UNK
     Route: 048
  3. PROGESTERONE [Suspect]
     Active Substance: PROGESTERONE
     Indication: Menopause
  4. ESTRADIOL [Concomitant]
     Active Substance: ESTRADIOL
     Dosage: PATCH
     Route: 062

REACTIONS (8)
  - Dyspepsia [Unknown]
  - Nausea [Not Recovered/Not Resolved]
  - Headache [Not Recovered/Not Resolved]
  - Poor quality product administered [Unknown]
  - Product odour abnormal [Unknown]
  - Product use in unapproved indication [Unknown]
  - Suspected product contamination [Unknown]
  - Suspected product quality issue [Unknown]
